FAERS Safety Report 16115414 (Version 3)
Quarter: 2019Q2

REPORT INFORMATION
  Report Type: Spontaneous
  Country: GR (occurrence: GR)
  Receive Date: 20190325
  Receipt Date: 20190419
  Transmission Date: 20190711
  Serious: Yes (Other)
  Sender: FDA-Public Use
  Company Number: PHHY2019GR064814

PATIENT
  Age: 81 Year
  Sex: Male

DRUGS (3)
  1. TIGECYCLINE. [Suspect]
     Active Substance: TIGECYCLINE
     Indication: MENINGITIS BACTERIAL
     Dosage: 4 MG, QD DISSOLVED IN 5 ML OF 0.9% NACL
     Route: 033
  2. TMP-SMX [Suspect]
     Active Substance: SULFAMETHOXAZOLE\TRIMETHOPRIM
     Indication: MENINGITIS BACTERIAL
     Dosage: 15 MG/KG, BW
     Route: 065
  3. TIGECYCLINE. [Suspect]
     Active Substance: TIGECYCLINE
     Dosage: 200 MG, QD
     Route: 042

REACTIONS (4)
  - Thrombocytopenia [Recovering/Resolving]
  - Drug resistance [Unknown]
  - Product use issue [Unknown]
  - Renal impairment [Unknown]
